FAERS Safety Report 7877267-0 (Version None)
Quarter: 2011Q4

REPORT INFORMATION
  Report Type: 
  Country: None (occurrence: None)
  Receive Date: 20111031
  Receipt Date: 20111021
  Transmission Date: 20120403
  Serious: Yes (Other)
  Sender: FDA-Public Use
  Company Number: US-ASTRAZENECA-2011SE59716

PATIENT
  Age: 66 Year
  Sex: Male
  Weight: 89.4 kg

DRUGS (7)
  1. ALBUTEROL [Concomitant]
  2. TOPROL-XL [Suspect]
     Route: 048
  3. SEROQUEL [Suspect]
     Route: 048
  4. CRESTOR [Suspect]
     Route: 048
  5. CLONAZEPAM [Concomitant]
  6. METFORMIN HCL [Concomitant]
  7. SYNTHROID [Concomitant]

REACTIONS (3)
  - INTRACRANIAL ANEURYSM [None]
  - MEMORY IMPAIRMENT [None]
  - CONFUSIONAL STATE [None]
